FAERS Safety Report 20637213 (Version 3)
Quarter: 2022Q4

REPORT INFORMATION
  Report Type: Spontaneous
  Country: US (occurrence: US)
  Receive Date: 20220325
  Receipt Date: 20221110
  Transmission Date: 20230112
  Serious: Yes (Other)
  Sender: FDA-Public Use
  Company Number: US-PFIZER INC-202200439094

PATIENT
  Age: 54 Year
  Sex: Female
  Weight: 84.37 kg

DRUGS (2)
  1. XELJANZ XR [Suspect]
     Active Substance: TOFACITINIB CITRATE
     Indication: Psoriatic arthropathy
     Dosage: 11 MG, 1X/DAY (ONCE A DAY, IN THE MORNING)
     Dates: start: 2020
  2. PLAQUINOL [Concomitant]
     Active Substance: HYDROXYCHLOROQUINE SULFATE
     Indication: Psoriatic arthropathy
     Dosage: 1 DF, 1X/DAY (SHE TAKES 1 1/2 TABLETS A DAY)

REACTIONS (10)
  - Spinal compression fracture [Unknown]
  - Osteopenia [Unknown]
  - White blood cell count abnormal [Unknown]
  - Pain [Unknown]
  - Bradykinesia [Unknown]
  - Memory impairment [Unknown]
  - Weight decreased [Unknown]
  - Decreased appetite [Unknown]
  - Nausea [Unknown]
  - Nasopharyngitis [Unknown]

NARRATIVE: CASE EVENT DATE: 20220101
